FAERS Safety Report 5282837-2 (Version None)
Quarter: 2007Q1

REPORT INFORMATION
  Report Type: 
  Country: None (occurrence: None)
  Receive Date: 20070329
  Receipt Date: 20070329
  Transmission Date: 20070707
  Serious: Yes (Other)
  Sender: FDA-Public Use
  Company Number: None

PATIENT
  Age: 9 Year
  Sex: Female
  Weight: 30.8446 kg

DRUGS (1)
  1. TRILEPTAL [Suspect]
     Indication: BIPOLAR DISORDER
     Dosage: 300 MG AM PO 900 MG PM PO
     Route: 048
     Dates: start: 20070313, end: 20070323

REACTIONS (2)
  - DRUG ERUPTION [None]
  - RASH MACULAR [None]
